FAERS Safety Report 8814167 (Version 1)
Quarter: 2012Q4

REPORT INFORMATION
  Report Type: Spontaneous
  Country: US (occurrence: None)
  Receive Date: 20120926
  Receipt Date: 20120926
  Transmission Date: 20130627
  Serious: Yes (Disabling)
  Sender: FDA-Public Use
  Company Number: None

PATIENT
  Age: 57 Year
  Sex: Female
  Weight: 73.94 kg

DRUGS (1)
  1. CRESTOR [Suspect]
     Indication: HEART DISORDER
     Dosage: take at dinner time once a day po
     Route: 048

REACTIONS (1)
  - Renal disorder [None]
